FAERS Safety Report 18206510 (Version 5)
Quarter: 2021Q1

REPORT INFORMATION
  Report Type: Spontaneous
  Country: US (occurrence: US)
  Receive Date: 20200828
  Receipt Date: 20210113
  Transmission Date: 20210419
  Serious: Yes (Life-Threatening, Hospitalization)
  Sender: FDA-Public Use
  Company Number: US-GW PHARMA-202008USGW02883

PATIENT

DRUGS (4)
  1. EPIDIOLEX [Suspect]
     Active Substance: CANNABIDIOL
     Dosage: 500 MILLIGRAM, TID
     Route: 048
     Dates: start: 202007
  2. METAXALONE. [Suspect]
     Active Substance: METAXALONE
     Indication: PRODUCT USED FOR UNKNOWN INDICATION
     Dosage: UNK
     Route: 065
  3. WARFARIN [Suspect]
     Active Substance: WARFARIN
     Indication: PRODUCT USED FOR UNKNOWN INDICATION
     Dosage: UNK
     Route: 065
  4. EPIDIOLEX [Suspect]
     Active Substance: CANNABIDIOL
     Indication: EPILEPSY
     Dosage: 500 MILLIGRAM, TID
     Route: 048
     Dates: start: 201904, end: 20200701

REACTIONS (6)
  - Haemoglobin decreased [Unknown]
  - Aphasia [Unknown]
  - Overdose [Unknown]
  - Haemorrhage [Unknown]
  - Weight decreased [Unknown]
  - Gait inability [Unknown]

NARRATIVE: CASE EVENT DATE: 2020
